FAERS Safety Report 15762818 (Version 1)
Quarter: 2018Q4

REPORT INFORMATION
  Report Type: Spontaneous
  Country: US (occurrence: US)
  Receive Date: 20181226
  Receipt Date: 20181226
  Transmission Date: 20190205
  Serious: Yes (Life-Threatening, Hospitalization, Other)
  Sender: FDA-Public Use
  Company Number: US-ELI_LILLY_AND_COMPANY-US201812010111

PATIENT
  Sex: Female

DRUGS (3)
  1. BASAGLAR [Suspect]
     Active Substance: INSULIN GLARGINE
     Dosage: 30 U, EACH EVENING
     Route: 065
     Dates: start: 2017
  2. NOVOLIN R [Concomitant]
     Active Substance: INSULIN HUMAN
     Indication: DIABETES MELLITUS
  3. BASAGLAR [Suspect]
     Active Substance: INSULIN GLARGINE
     Indication: DIABETES MELLITUS
     Dosage: 30 U, EACH MORNING
     Route: 065
     Dates: start: 2017

REACTIONS (21)
  - Wheezing [Not Recovered/Not Resolved]
  - Tooth fracture [Not Recovered/Not Resolved]
  - Thinking abnormal [Not Recovered/Not Resolved]
  - Anxiety [Not Recovered/Not Resolved]
  - Blood glucose increased [Not Recovered/Not Resolved]
  - Blood glucose increased [Recovered/Resolved]
  - Panic attack [Unknown]
  - Anxiety [Unknown]
  - Respiration abnormal [Unknown]
  - Asthma [Unknown]
  - Inappropriate schedule of product administration [Unknown]
  - Cerebrovascular accident [Unknown]
  - Fall [Unknown]
  - Confusional state [Not Recovered/Not Resolved]
  - Blood pressure increased [Unknown]
  - Head injury [Unknown]
  - Dysgraphia [Not Recovered/Not Resolved]
  - Blood glucose increased [Unknown]
  - Blood glucose decreased [Not Recovered/Not Resolved]
  - Abnormal dreams [Unknown]
  - Infection [Unknown]
